FAERS Safety Report 6005365-5 (Version None)
Quarter: 2008Q4

REPORT INFORMATION
  Report Type: 
  Country: None (occurrence: None)
  Receive Date: 20081216
  Receipt Date: 20081210
  Transmission Date: 20090506
  Serious: Yes (Disabling, Other)
  Sender: FDA-Public Use
  Company Number: US-GILEAD-2008-0019462

PATIENT
  Sex: Female

DRUGS (16)
  1. LETAIRIS [Suspect]
     Indication: PULMONARY ARTERIAL HYPERTENSION
     Route: 048
     Dates: start: 20081014
  2. LETAIRIS [Suspect]
     Route: 048
  3. NIACIN [Concomitant]
  4. LEXAPRO [Concomitant]
  5. LIPITOR [Concomitant]
  6. PLAVIX [Concomitant]
  7. AVAPRO [Concomitant]
  8. KLOR-CON [Concomitant]
  9. TORSEMIDE [Concomitant]
  10. LEVOTHYROXINE SODIUM [Concomitant]
  11. REVATIO [Concomitant]
  12. VITAMIN A [Concomitant]
  13. VITAMIN E [Concomitant]
  14. VITAMIN B COMPLEX CAP [Concomitant]
  15. FOLIC ACID [Concomitant]
  16. ASPIRIN [Concomitant]

REACTIONS (1)
  - DIZZINESS [None]
